FAERS Safety Report 13453228 (Version 1)
Quarter: 2017Q2

REPORT INFORMATION
  Report Type: Spontaneous
  Country: US (occurrence: US)
  Receive Date: 20170418
  Receipt Date: 20170418
  Transmission Date: 20170830
  Serious: No
  Sender: FDA-Public Use
  Company Number: US-ALLERGAN-1659456US

PATIENT
  Sex: Female
  Weight: 45.35 kg

DRUGS (2)
  1. LOSARTAN. [Concomitant]
     Active Substance: LOSARTAN
     Indication: HYPERTENSION
     Route: 048
  2. LATISSE [Suspect]
     Active Substance: BIMATOPROST
     Indication: GROWTH OF EYELASHES
     Dosage: 2-3 DROPS TO BRUSH, QHS
     Route: 061
     Dates: start: 2014

REACTIONS (4)
  - Inappropriate schedule of drug administration [Unknown]
  - Product quality issue [Unknown]
  - Madarosis [Not Recovered/Not Resolved]
  - Wrong technique in product usage process [Unknown]
